FAERS Safety Report 8544317-8 (Version None)
Quarter: 2012Q3

REPORT INFORMATION
  Report Type: 
  Country: None (occurrence: None)
  Receive Date: 20120727
  Receipt Date: 20120724
  Transmission Date: 20120928
  Serious: Yes (Other)
  Sender: FDA-Public Use
  Company Number: US-PFIZER INC-2012172554

PATIENT
  Sex: Female

DRUGS (1)
  1. CYTOTEC [Suspect]
     Indication: ABORTION
     Dosage: 200 UG, ONE PILL (200 MCG) EVERY TWO HOURS

REACTIONS (3)
  - DIARRHOEA [None]
  - OFF LABEL USE [None]
  - VAGINAL HAEMORRHAGE [None]
